FAERS Safety Report 4818694-5 (Version None)
Quarter: 2005Q4

REPORT INFORMATION
  Report Type: 
  Country: None (occurrence: None)
  Receive Date: 20051102
  Receipt Date: 20050414
  Transmission Date: 20060501
  Serious: Yes (Hospitalization)
  Sender: FDA-Public Use
  Company Number: US-MERCK-0504USA02946

PATIENT
  Age: 59 Year
  Sex: Female
  Weight: 66 kg

DRUGS (3)
  1. VIOXX [Suspect]
     Indication: OSTEOARTHRITIS
     Route: 048
     Dates: start: 20000101, end: 20020101
  2. HYDRODIURIL [Concomitant]
     Route: 065
     Dates: start: 20000101, end: 20010101
  3. ULTRAM [Concomitant]
     Route: 065
     Dates: start: 20000101, end: 20040101

REACTIONS (1)
  - MYOCARDIAL INFARCTION [None]
